FAERS Safety Report 12619250 (Version 1)
Quarter: 2016Q3

REPORT INFORMATION
  Report Type: Spontaneous
  Country: FR (occurrence: FR)
  Receive Date: 20160803
  Receipt Date: 20160803
  Transmission Date: 20161109
  Serious: Yes (Other)
  Sender: FDA-Public Use
  Company Number: FR-PFIZER INC-2016369621

PATIENT
  Age: 62 Year
  Sex: Male

DRUGS (6)
  1. LYRICA [Suspect]
     Active Substance: PREGABALIN
     Dosage: 25 MG, 3X/DAY
  2. BISOPROLOL FUMARATE. [Suspect]
     Active Substance: BISOPROLOL FUMARATE
     Dosage: 7.5 MG, DAILY
     Route: 048
  3. CRESTOR [Suspect]
     Active Substance: ROSUVASTATIN CALCIUM
     Dosage: 5 MG, DAILY
     Route: 048
  4. PERINDOPRIL [Suspect]
     Active Substance: PERINDOPRIL
     Dosage: 8 MG, DAILY
     Route: 048
  5. KARDEGIC [Suspect]
     Active Substance: ASPIRIN LYSINE
     Dosage: 160 MG, DAILY
     Route: 048
  6. EUPANTOL [Suspect]
     Active Substance: PANTOPRAZOLE SODIUM
     Dosage: 20 MG, DAILY

REACTIONS (5)
  - Polyarthritis [Not Recovered/Not Resolved]
  - Leukopenia [Unknown]
  - Anaemia [Unknown]
  - Systemic lupus erythematosus [Not Recovered/Not Resolved]
  - Polyneuropathy [Not Recovered/Not Resolved]

NARRATIVE: CASE EVENT DATE: 201603
